FAERS Safety Report 4628178-5 (Version None)
Quarter: 2005Q2

REPORT INFORMATION
  Report Type: 
  Country: None (occurrence: None)
  Receive Date: 20050401
  Receipt Date: 20050329
  Transmission Date: 20051028
  Serious: Yes (Hospitalization, Other)
  Sender: FDA-Public Use
  Company Number: SEWYE538829MAR05

PATIENT
  Sex: Male

DRUGS (2)
  1. EFFEXOR [Suspect]
     Indication: DEPRESSION
     Dosage: 225 MG 1 X PER 1 DAY; ORAL
     Route: 048
     Dates: start: 20050125, end: 20050204
  2. REMERON [Suspect]
     Indication: DEPRESSION
     Dosage: 30 MG 1X PER 1 DAY; ORAL
     Route: 048
     Dates: start: 20050125, end: 20050204

REACTIONS (5)
  - CONFUSIONAL STATE [None]
  - DISTURBANCE IN ATTENTION [None]
  - HEADACHE [None]
  - HYPERHIDROSIS [None]
  - SEROTONIN SYNDROME [None]
